FAERS Safety Report 8142302-1 (Version None)
Quarter: 2012Q1

REPORT INFORMATION
  Report Type: 
  Country: None (occurrence: None)
  Receive Date: 20120216
  Receipt Date: 20120206
  Transmission Date: 20120608
  Serious: Yes (Other)
  Sender: FDA-Public Use
  Company Number: US-ELI_LILLY_AND_COMPANY-US201202002569

PATIENT
  Sex: Male

DRUGS (1)
  1. HUMALOG [Suspect]
     Indication: DIABETES MELLITUS
     Dosage: UNK, PRN

REACTIONS (11)
  - BLOOD PRESSURE INCREASED [None]
  - BLOOD GLUCOSE DECREASED [None]
  - GAIT DISTURBANCE [None]
  - DELUSION [None]
  - BLOOD GLUCOSE INCREASED [None]
  - CATARACT [None]
  - DRUG DOSE OMISSION [None]
  - BLOOD KETONE BODY [None]
  - BLOOD GLUCOSE ABNORMAL [None]
  - INCORRECT DOSE ADMINISTERED [None]
  - MALAISE [None]
